FAERS Safety Report 8427253-7 (Version None)
Quarter: 2012Q2

REPORT INFORMATION
  Report Type: 
  Country: None (occurrence: None)
  Receive Date: 20120611
  Receipt Date: 20120313
  Transmission Date: 20120825
  Serious: Yes (Hospitalization)
  Sender: FDA-Public Use
  Company Number: US-GLAXOSMITHKLINE-A0969887A

PATIENT
  Sex: Female
  Weight: 105.9 kg

DRUGS (6)
  1. CHOLESTYRAMINE [Concomitant]
  2. ALBUTEROL [Concomitant]
  3. ADVAIR DISKUS 100/50 [Suspect]
     Indication: CHRONIC OBSTRUCTIVE PULMONARY DISEASE
     Dosage: 1PUFF TWICE PER DAY
     Route: 055
     Dates: start: 20030228
  4. XANAX [Concomitant]
  5. ZANTAC [Concomitant]
  6. SYMBICORT [Concomitant]
     Dates: start: 20100719

REACTIONS (3)
  - FLUSHING [None]
  - CHRONIC OBSTRUCTIVE PULMONARY DISEASE [None]
  - ASTHMA [None]
